FAERS Safety Report 16099350 (Version 1)
Quarter: 2019Q1

REPORT INFORMATION
  Report Type: Spontaneous
  Country: US (occurrence: US)
  Receive Date: 20190218
  Receipt Date: 20190218
  Transmission Date: 20190418
  Serious: No
  Sender: FDA-Public Use
  Company Number: None

PATIENT

DRUGS (1)
  1. HUMIRA [Suspect]
     Active Substance: ADALIMUMAB
     Indication: RHEUMATOID ARTHRITIS
     Dosage: ?          OTHER FREQUENCY:EVERY OTHER WEEK ;?
     Route: 058
     Dates: start: 201807

REACTIONS (2)
  - Erectile dysfunction [None]
  - Blood testosterone decreased [None]

NARRATIVE: CASE EVENT DATE: 201812
